FAERS Safety Report 24105773 (Version 1)
Quarter: 2024Q3

REPORT INFORMATION
  Report Type: Spontaneous
  Country: RU (occurrence: RU)
  Receive Date: 20240717
  Receipt Date: 20240717
  Transmission Date: 20241017
  Serious: Yes (Other)
  Sender: GLAXOSMITHKLINE
  Company Number: RU-GSK-RU2024EME088399

PATIENT

DRUGS (1)
  1. NUCALA [Suspect]
     Active Substance: MEPOLIZUMAB
     Indication: Asthma
     Dosage: UNK
     Dates: start: 202007, end: 202402

REACTIONS (4)
  - Neuroendocrine carcinoma [Unknown]
  - Appendix cancer [Unknown]
  - Metastases to peritoneum [Unknown]
  - Metastases to ovary [Unknown]

NARRATIVE: CASE EVENT DATE: 20240401
